FAERS Safety Report 11734795 (Version 1)
Quarter: 2015Q4

REPORT INFORMATION
  Report Type: Spontaneous
  Country: US (occurrence: US)
  Receive Date: 20151113
  Receipt Date: 20151113
  Transmission Date: 20160304
  Serious: No
  Sender: FDA-Public Use
  Company Number: US-PFIZER INC-2015385030

PATIENT
  Age: 41 Year
  Sex: Female
  Weight: 70 kg

DRUGS (2)
  1. HYDROCHLOROTHIAZIDE. [Concomitant]
     Active Substance: HYDROCHLOROTHIAZIDE
     Indication: BLOOD PRESSURE ABNORMAL
     Dosage: UNK
  2. PREMARIN [Suspect]
     Active Substance: ESTROGENS, CONJUGATED
     Indication: VULVOVAGINAL DRYNESS
     Dosage: UNK, (ABOUT 0.5 AND IT WAS SMALL DOSE)

REACTIONS (3)
  - Vulvovaginal pruritus [Recovering/Resolving]
  - Drug ineffective [Recovering/Resolving]
  - Vulvovaginal discomfort [Recovering/Resolving]

NARRATIVE: CASE EVENT DATE: 201511
